FAERS Safety Report 15693258 (Version 3)
Quarter: 2019Q2

REPORT INFORMATION
  Report Type: Report from Study
  Country: CA (occurrence: CA)
  Receive Date: 20181206
  Receipt Date: 20190606
  Transmission Date: 20190711
  Serious: Yes (Hospitalization)
  Sender: FDA-Public Use
  Company Number: CA-TAKEDA-2018TUS031538

PATIENT
  Age: 69 Year
  Sex: Female

DRUGS (3)
  1. VEDOLIZUMAB [Suspect]
     Active Substance: VEDOLIZUMAB
     Dosage: 300 MILLIGRAM
     Route: 042
  2. VEDOLIZUMAB [Suspect]
     Active Substance: VEDOLIZUMAB
     Dosage: 300 MILLIGRAM
     Route: 042
     Dates: end: 20190516
  3. VEDOLIZUMAB [Suspect]
     Active Substance: VEDOLIZUMAB
     Indication: CROHN^S DISEASE
     Dosage: 300 MILLIGRAM
     Route: 042
     Dates: start: 20181012

REACTIONS (8)
  - Anal fistula [Recovered/Resolved]
  - Dehydration [Recovered/Resolved]
  - Abdominal pain [Unknown]
  - Pyrexia [Unknown]
  - Crohn^s disease [Recovered/Resolved]
  - Asthenia [Recovered/Resolved]
  - Electrolyte imbalance [Recovered/Resolved]
  - Abscess intestinal [Recovered/Resolved]

NARRATIVE: CASE EVENT DATE: 201810
